FAERS Safety Report 7290390-7 (Version None)
Quarter: 2011Q1

REPORT INFORMATION
  Report Type: 
  Country: None (occurrence: None)
  Receive Date: 20110208
  Receipt Date: 20110208
  Transmission Date: 20110831
  Serious: Yes (Other)
  Sender: FDA-Public Use
  Company Number: None

PATIENT
  Age: 46 Year
  Sex: Female
  Weight: 92.9874 kg

DRUGS (2)
  1. PLAVIX [Suspect]
     Indication: ANGIOPLASTY
     Dosage: 1 TAB ONCE PER DAY PO
     Route: 048
     Dates: start: 20110118, end: 20110206
  2. PLAVIX [Suspect]
     Indication: POSTOPERATIVE CARE
     Dosage: 1 TAB ONCE PER DAY PO
     Route: 048
     Dates: start: 20110118, end: 20110206

REACTIONS (1)
  - PRURITUS [None]
